FAERS Safety Report 5541516-4 (Version None)
Quarter: 2007Q4

REPORT INFORMATION
  Report Type: 
  Country: None (occurrence: None)
  Receive Date: 20071210
  Receipt Date: 20071205
  Transmission Date: 20080405
  Serious: Yes (Death, Other)
  Sender: FDA-Public Use
  Company Number: PHNU2007DE02114

PATIENT
  Age: 74 Year
  Sex: Male

DRUGS (4)
  1. ZOMETA [Suspect]
     Indication: METASTASES TO BONE
     Dosage: 4 MG, UNK
     Dates: start: 20070208, end: 20070402
  2. CASODEX [Concomitant]
     Dosage: 50 MG, QD
     Route: 065
     Dates: start: 20070417, end: 20070616
  3. FLOMAX [Concomitant]
     Route: 065
  4. ENANTONE [Concomitant]
     Indication: PROSTATE CANCER
     Route: 058
     Dates: start: 20070515

REACTIONS (5)
  - BONE MARROW TUMOUR CELL INFILTRATION [None]
  - CEREBRAL HAEMORRHAGE [None]
  - HAEMORRHAGE [None]
  - OESOPHAGEAL PERFORATION [None]
  - THROMBOCYTOPENIA [None]
